FAERS Safety Report 16091702 (Version 1)
Quarter: 2019Q1

REPORT INFORMATION
  Report Type: Spontaneous
  Country: US (occurrence: US)
  Receive Date: 20190319
  Receipt Date: 20190319
  Transmission Date: 20190418
  Serious: Yes (Hospitalization, Other)
  Sender: FDA-Public Use
  Company Number: US-NAPPMUNDI-USA-2019-0146475

PATIENT
  Sex: Female

DRUGS (5)
  1. FENTANYL. [Suspect]
     Active Substance: FENTANYL
     Indication: ANALGESIC THERAPY
     Route: 065
  2. OXYCODONE HYDROCHLORIDE (SIMILAR TO NDA 22-272) [Suspect]
     Active Substance: OXYCODONE HYDROCHLORIDE
     Indication: ANALGESIC THERAPY
     Route: 048
  3. HYDROCODONE BITARTRATE (SIMILAR TO NDA 206627) [Suspect]
     Active Substance: HYDROCODONE BITARTRATE
     Indication: ANALGESIC THERAPY
     Route: 048
  4. CLONAZEPAM. [Concomitant]
     Active Substance: CLONAZEPAM
     Indication: PRODUCT USED FOR UNKNOWN INDICATION
  5. GABAPENTIN. [Suspect]
     Active Substance: GABAPENTIN
     Indication: BACK PAIN
     Dosage: 600 MG, BID TO TID
     Route: 048
     Dates: start: 2017

REACTIONS (17)
  - Dyspnoea [Unknown]
  - Unevaluable event [Unknown]
  - Gastric disorder [Unknown]
  - Drug withdrawal syndrome [Unknown]
  - Drug dependence [Unknown]
  - Gait inability [Unknown]
  - Aphasia [Unknown]
  - Feeling hot [Unknown]
  - Eating disorder [Unknown]
  - Paraesthesia [Unknown]
  - Weight decreased [Unknown]
  - Night sweats [Unknown]
  - Oedema [Unknown]
  - Dysphagia [Unknown]
  - Nausea [Unknown]
  - Mental impairment [Unknown]
  - Speech disorder [Unknown]
